FAERS Safety Report 17025524 (Version 1)
Quarter: 2019Q4

REPORT INFORMATION
  Report Type: Spontaneous
  Country: US (occurrence: US)
  Receive Date: 20191009
  Receipt Date: 20191009
  Transmission Date: 20200122
  Serious: Yes (Other)
  Sender: FDA-Public Use
  Company Number: None

PATIENT
  Age: 66 Year
  Sex: Female

DRUGS (2)
  1. TEMOZOLOMIDE 180MG [Suspect]
     Active Substance: TEMOZOLOMIDE
     Indication: BRAIN CANCER METASTATIC
     Dosage: ?          OTHER FREQUENCY:QHS;?
     Route: 048
     Dates: start: 20190905
  2. TEMOZOLOMIDE 140MG [Suspect]
     Active Substance: TEMOZOLOMIDE
     Indication: BRAIN CANCER METASTATIC
     Dosage: ?          OTHER FREQUENCY:QHS;?
     Route: 048
     Dates: start: 20190905

REACTIONS (3)
  - Therapy cessation [None]
  - Platelet count decreased [None]
  - Blood count abnormal [None]

NARRATIVE: CASE EVENT DATE: 20191003
